FAERS Safety Report 5515723-0 (Version None)
Quarter: 2007Q4

REPORT INFORMATION
  Report Type: 
  Country: None (occurrence: None)
  Receive Date: 20071114
  Receipt Date: 20071112
  Transmission Date: 20080405
  Serious: Yes (Other)
  Sender: FDA-Public Use
  Company Number: US-RB-008384-07

PATIENT
  Sex: Male

DRUGS (2)
  1. SUBOXONE [Suspect]
     Dosage: DOSAGE UNKNOWN
     Route: 060
     Dates: start: 20070801
  2. PHENCYCLIDINE [Suspect]
     Indication: DRUG USE FOR UNKNOWN INDICATION
     Dosage: PHYSICIAN FEELS THE PATIENT WAS ON UNKNOWN AMOUNT OF PCP, THOUGH UNCONFIRMED.
     Route: 065

REACTIONS (1)
  - PSYCHOTIC DISORDER [None]
